FAERS Safety Report 7932205-7 (Version None)
Quarter: 2011Q4

REPORT INFORMATION
  Report Type: 
  Country: None (occurrence: None)
  Receive Date: 20111121
  Receipt Date: 20111109
  Transmission Date: 20120403
  Serious: Yes (Hospitalization)
  Sender: FDA-Public Use
  Company Number: US-ELI_LILLY_AND_COMPANY-US201111003866

PATIENT
  Sex: Male

DRUGS (3)
  1. HUMULIN 70/30 [Suspect]
     Indication: TYPE 2 DIABETES MELLITUS
     Dosage: 20 U AM, 10 U PM
     Dates: start: 20111019
  2. LANTUS [Concomitant]
     Dosage: UNK
  3. HUMULIN 70/30 [Suspect]
     Dosage: 20 U AM, 10 U PM
     Dates: start: 20110801, end: 20111019

REACTIONS (1)
  - SKIN ULCER [None]
